FAERS Safety Report 5796580-4 (Version None)
Quarter: 2008Q3

REPORT INFORMATION
  Report Type: 
  Country: None (occurrence: None)
  Receive Date: 20080701
  Receipt Date: 20080623
  Transmission Date: 20090109
  Serious: Yes (Other)
  Sender: FDA-Public Use
  Company Number: US-JNJFOC-20080206576

PATIENT
  Sex: Female

DRUGS (1)
  1. REMICADE [Suspect]
     Indication: PSORIATIC ARTHROPATHY
     Route: 042

REACTIONS (5)
  - LUNG INFILTRATION [None]
  - PARALYSIS [None]
  - PLEURAL EFFUSION [None]
  - PLEURISY [None]
  - RHEUMATOID ARTHRITIS [None]
